FAERS Safety Report 21449329 (Version 1)
Quarter: 2022Q4

REPORT INFORMATION
  Report Type: Spontaneous
  Country: US (occurrence: US)
  Receive Date: 20221013
  Receipt Date: 20221013
  Transmission Date: 20230112
  Serious: Yes (Other)
  Sender: FDA-Public Use
  Company Number: US-SUN PHARMACEUTICAL INDUSTRIES LTD-2022R1-358454

PATIENT
  Age: 51 Year
  Sex: Male

DRUGS (4)
  1. PREDNISONE [Suspect]
     Active Substance: PREDNISONE
     Indication: Pemphigus
     Dosage: 60 MILLIGRAM, DAILY
     Route: 065
  2. CLOBETASOL [Suspect]
     Active Substance: CLOBETASOL
     Indication: Pemphigus
     Dosage: UNK
     Route: 061
  3. MYCOPHENOLATE MOFETIL [Suspect]
     Active Substance: MYCOPHENOLATE MOFETIL
     Indication: Pemphigus
     Dosage: 1000 MILLIGRAM, BID
     Route: 065
  4. NYSTATIN [Suspect]
     Active Substance: NYSTATIN
     Indication: Pemphigus
     Dosage: UNK
     Route: 061

REACTIONS (3)
  - Full blood count abnormal [Unknown]
  - Condition aggravated [Unknown]
  - Mouth ulceration [Recovered/Resolved]
